FAERS Safety Report 4713949-7 (Version None)
Quarter: 2005Q3

REPORT INFORMATION
  Report Type: 
  Country: None (occurrence: None)
  Receive Date: 20050713
  Receipt Date: 20050628
  Transmission Date: 20060218
  Serious: Yes (Other)
  Sender: FDA-Public Use
  Company Number: GBS050617753

PATIENT
  Age: 46 Year
  Weight: 86 kg

DRUGS (5)
  1. OLANZAPINE [Suspect]
     Indication: SCHIZOPHRENIA
     Dosage: 10 MG/1 DAY
     Route: 048
     Dates: start: 20041201, end: 20041215
  2. LANSOPRASOLE [Concomitant]
  3. SPIRONOLACTONE [Concomitant]
  4. THIAMINE [Concomitant]
  5. PAROXETINE HCL [Concomitant]

REACTIONS (3)
  - DERMATITIS [None]
  - DRUG WITHDRAWAL SYNDROME [None]
  - PSORIASIS [None]
